FAERS Safety Report 25814279 (Version 1)
Quarter: 2025Q3

REPORT INFORMATION
  Report Type: Spontaneous
  Country: US (occurrence: US)
  Receive Date: 20250917
  Receipt Date: 20250917
  Transmission Date: 20251020
  Serious: Yes (Other)
  Sender: ABBVIE
  Company Number: US-ABBVIE-6463302

PATIENT
  Age: 68 Year
  Sex: Female
  Weight: 96.1 kg

DRUGS (4)
  1. SYNTHROID [Suspect]
     Active Substance: LEVOTHYROXINE SODIUM
     Indication: Product used for unknown indication
     Route: 048
     Dates: start: 1977
  2. ELIQUIS [Concomitant]
     Active Substance: APIXABAN
     Indication: Thrombosis
  3. ANASTROZOLE [Concomitant]
     Active Substance: ANASTROZOLE
     Indication: Breast cancer
  4. WARFARIN [Concomitant]
     Active Substance: WARFARIN
     Indication: Thrombosis

REACTIONS (7)
  - Recurrent cancer [Not Recovered/Not Resolved]
  - Nodule [Unknown]
  - Thyroid disorder [Not Recovered/Not Resolved]
  - Thyroid mass [Unknown]
  - Thyroid hormones increased [Recovered/Resolved]
  - Product physical issue [Not Recovered/Not Resolved]
  - Thyroglobulin increased [Not Recovered/Not Resolved]

NARRATIVE: CASE EVENT DATE: 20210101
